FAERS Safety Report 12606027 (Version 1)
Quarter: 2016Q3

REPORT INFORMATION
  Report Type: Spontaneous
  Country: US (occurrence: None)
  Receive Date: 20160728
  Receipt Date: 20160728
  Transmission Date: 20161109
  Serious: Yes (Life-Threatening, Hospitalization, Other)
  Sender: FDA-Public Use
  Company Number: None

PATIENT
  Age: 26 Year
  Sex: Female
  Weight: 83.92 kg

DRUGS (1)
  1. MIRENA [Suspect]
     Active Substance: LEVONORGESTREL
     Dates: start: 20160420

REACTIONS (9)
  - Pain [None]
  - Complication of device removal [None]
  - Ectopic pregnancy [None]
  - Fallopian tube perforation [None]
  - Internal haemorrhage [None]
  - Pelvic pain [None]
  - Device issue [None]
  - Swelling [None]
  - Scar [None]

NARRATIVE: CASE EVENT DATE: 20160721
